FAERS Safety Report 21746146 (Version 1)
Quarter: 2022Q4

REPORT INFORMATION
  Report Type: Spontaneous
  Country: US (occurrence: None)
  Receive Date: 20221216
  Receipt Date: 20221216
  Transmission Date: 20230113
  Serious: No
  Sender: FDA-Public Use
  Company Number: None

PATIENT
  Sex: Female

DRUGS (2)
  1. VELETRI [Suspect]
     Active Substance: EPOPROSTENOL
     Dosage: 21.6 NG/KG/MIN CONTINUOUS INTRAVENOUS
     Route: 042
  2. DEVICE [Suspect]
     Active Substance: DEVICE
     Indication: Pulmonary arterial hypertension
     Route: 042
     Dates: start: 20200916

REACTIONS (5)
  - Recalled product [None]
  - Fatigue [None]
  - Dyspnoea [None]
  - Oxygen saturation decreased [None]
  - Therapy interrupted [None]
